FAERS Safety Report 6005467-3 (Version None)
Quarter: 2008Q4

REPORT INFORMATION
  Report Type: 
  Country: None (occurrence: None)
  Receive Date: 20081217
  Receipt Date: 20081212
  Transmission Date: 20090506
  Serious: Yes (Other)
  Sender: FDA-Public Use
  Company Number: CH-ROXANE LABORATORIES, INC.-2008-RO-00411RO

PATIENT
  Age: 65 Year
  Sex: Female

DRUGS (4)
  1. FLUCONAZOLE [Suspect]
     Indication: CANDIDIASIS
     Dosage: 800MG
  2. SIMVASTATIN [Suspect]
     Dosage: 40MG
  3. METHYLPREDNISOLONE 16MG TAB [Concomitant]
     Indication: RHABDOMYOLYSIS
     Dosage: 1000MG
     Route: 042
  4. BICARBONATE [Concomitant]
     Indication: RHABDOMYOLYSIS

REACTIONS (1)
  - RHABDOMYOLYSIS [None]
